FAERS Safety Report 22208387 (Version 1)
Quarter: 2023Q2

REPORT INFORMATION
  Report Type: Spontaneous
  Country: CA (occurrence: CA)
  Receive Date: 20230413
  Receipt Date: 20230413
  Transmission Date: 20230721
  Serious: Yes (Other)
  Sender: FDA-Public Use
  Company Number: CA-BAXTER-2023BAX018333

PATIENT

DRUGS (2)
  1. BUPIVACAINE [Suspect]
     Active Substance: BUPIVACAINE
     Indication: Spinal anaesthesia
     Dosage: (BUPIVACAINE HYDROCHLORIDE IN DEXTROSE INJECTION USP SINGLE DOSE) AT AN UNSPECIFIED DOSE AND FREQUEN
     Route: 065
  2. BUPIVACAINE [Suspect]
     Active Substance: BUPIVACAINE
     Indication: Caesarean section

REACTIONS (1)
  - Inadequate analgesia [Unknown]
